FAERS Safety Report 20783999 (Version 1)
Quarter: 2022Q2

REPORT INFORMATION
  Report Type: Spontaneous
  Country: US (occurrence: US)
  Receive Date: 20220504
  Receipt Date: 20220504
  Transmission Date: 20220720
  Serious: Yes (Disabling, Other)
  Sender: FDA-Public Use
  Company Number: US-MYLANLABS-2022M1032351

PATIENT
  Age: 6 Week
  Sex: Male

DRUGS (14)
  1. CARBOPLATIN [Suspect]
     Active Substance: CARBOPLATIN
     Indication: Congenital retinoblastoma
     Dosage: 18 MILLIGRAM/KILOGRAM, CYCLE (EVERY 28 DAYS; 6 CYCLES)
     Route: 042
  2. CARBOPLATIN [Suspect]
     Active Substance: CARBOPLATIN
     Indication: Congenital retinoblastoma
     Dosage: 18 MILLIGRAM/KILOGRAM, CYCLE (4 CYCLES)
     Route: 065
  3. ETOPOSIDE [Suspect]
     Active Substance: ETOPOSIDE
     Indication: Congenital retinoblastoma
     Dosage: 5 MILLIGRAM/KILOGRAM, CYCLE (EVERY 28 DAYS; 6 CYCLES)
     Route: 042
  4. ETOPOSIDE [Suspect]
     Active Substance: ETOPOSIDE
     Dosage: 120 MILLIGRAM/SQ. METER, CYCLE (ARET0321 REGIMEN; ON DAYS 1 AND 2)
     Route: 042
  5. CISPLATIN [Suspect]
     Active Substance: CISPLATIN
     Indication: Neoplasm recurrence
     Dosage: 105 MILLIGRAM/SQ. METER, CYCLE (ARET0321 REGIMEN; OVER 6 HOURS ON DAY 0)
     Route: 042
  6. CISPLATIN [Suspect]
     Active Substance: CISPLATIN
     Indication: Congenital retinoblastoma
  7. MESNA [Suspect]
     Active Substance: MESNA
     Indication: Neoplasm recurrence
     Dosage: UNK, CYCLE (ARET0321 REGIMEN)
     Route: 065
  8. MESNA [Suspect]
     Active Substance: MESNA
     Indication: Congenital retinoblastoma
  9. CYCLOPHOSPHAMIDE [Suspect]
     Active Substance: CYCLOPHOSPHAMIDE
     Indication: Neoplasm recurrence
     Dosage: 1950 MILLIGRAM/SQ. METER, CYCLE (ARET0321 REGIMEN; OVER 1 HOURS ON DAYS 1 AND 2)
     Route: 042
  10. CYCLOPHOSPHAMIDE [Suspect]
     Active Substance: CYCLOPHOSPHAMIDE
     Indication: Congenital retinoblastoma
  11. VINCRISTINE [Suspect]
     Active Substance: VINCRISTINE
     Indication: Congenital retinoblastoma
     Dosage: 0.05 MILLIGRAM/KILOGRAM, CYCLE (EVERY 28 DAYS; 6 CYCLES)
     Route: 042
  12. VINCRISTINE [Suspect]
     Active Substance: VINCRISTINE
     Indication: Neoplasm recurrence
     Dosage: UNK (ARET0321 REGIMEN; 1.5 MG/M2 AND MAXIMUM 2 MG/M2 ON DAY 0; 4 CYCLES)
     Route: 042
  13. VINCRISTINE [Suspect]
     Active Substance: VINCRISTINE
     Indication: Congenital retinoblastoma
     Dosage: 0.05 MILLIGRAM/KILOGRAM, CYCLE (4 CYCLES)
     Route: 065
  14. VINCRISTINE [Suspect]
     Active Substance: VINCRISTINE
     Indication: Neoplasm recurrence

REACTIONS (7)
  - Deafness neurosensory [Unknown]
  - Drug ineffective [Unknown]
  - Neutropenia [Recovering/Resolving]
  - Cytopenia [Unknown]
  - Hypersensitivity [Recovered/Resolved]
  - Nausea [Unknown]
  - Vomiting [Unknown]
